FAERS Safety Report 21329190 (Version 1)
Quarter: 2022Q3

REPORT INFORMATION
  Report Type: Spontaneous
  Country: US (occurrence: US)
  Receive Date: 20220913
  Receipt Date: 20220913
  Transmission Date: 20221026
  Serious: No
  Sender: FDA-Public Use
  Company Number: US-BIOGEN-2022BI01153966

PATIENT
  Sex: Female

DRUGS (1)
  1. TYSABRI [Suspect]
     Active Substance: NATALIZUMAB
     Indication: Relapsing-remitting multiple sclerosis
     Dosage: 08-MAR, 04-APR, 03-MAY, 08-JUN, 06-JUL AND 03-AUG
     Route: 050
     Dates: start: 20210504, end: 20220907

REACTIONS (1)
  - Magnetic resonance imaging abnormal [Unknown]
